FAERS Safety Report 4536782-8 (Version None)
Quarter: 2004Q4

REPORT INFORMATION
  Report Type: 
  Country: None (occurrence: None)
  Receive Date: 20041223
  Receipt Date: 20041213
  Transmission Date: 20050328
  Serious: Yes (Congenital Anomaly)
  Sender: FDA-Public Use
  Company Number: US-ROCHE-389291

PATIENT
  Sex: Male

DRUGS (1)
  1. ACCUTANE [Suspect]
     Dates: start: 19960615, end: 19960615

REACTIONS (12)
  - CONGENITAL CENTRAL NERVOUS SYSTEM ANOMALY [None]
  - CONGENITAL EYE DISORDER [None]
  - CONGENITAL MITOCHONDRIAL CYTOPATHY [None]
  - CONVULSION [None]
  - DEVELOPMENTAL DELAY [None]
  - DYSPHAGIA [None]
  - FEEDING DISORDER [None]
  - GASTROINTESTINAL DISORDER [None]
  - HEPATIC ENZYME INCREASED [None]
  - INBORN ERROR OF METABOLISM [None]
  - MICROCEPHALY [None]
  - MOVEMENT DISORDER [None]
